FAERS Safety Report 10078447 (Version 1)
Quarter: 2014Q2

REPORT INFORMATION
  Report Type: Spontaneous
  Country: JP (occurrence: JP)
  Receive Date: 20140415
  Receipt Date: 20140415
  Transmission Date: 20141212
  Serious: No
  Sender: FDA-Public Use
  Company Number: JP-JNJFOC-20140404240

PATIENT
  Age: 83 Year
  Sex: Male

DRUGS (1)
  1. DUROTEP MT [Suspect]
     Indication: CANCER PAIN
     Dosage: 6X100UG/HR PATCHES EVERY 3 AND 4 DAYS
     Route: 062

REACTIONS (1)
  - Inappropriate schedule of drug administration [Unknown]
